FAERS Safety Report 24346657 (Version 1)
Quarter: 2024Q3

REPORT INFORMATION
  Report Type: Spontaneous
  Country: US (occurrence: US)
  Receive Date: 20240921
  Receipt Date: 20240921
  Transmission Date: 20241016
  Serious: No
  Sender: CIPLA
  Company Number: US-CIPLA LTD.-2024US06047

PATIENT

DRUGS (2)
  1. ALENDRONATE [Suspect]
     Active Substance: ALENDRONATE SODIUM
     Indication: Osteoporosis
     Dosage: 70 MG, ONCE IN A WEEK
     Route: 048
     Dates: start: 202403
  2. RALOXIFENE [Concomitant]
     Active Substance: RALOXIFENE
     Indication: Asthma
     Dosage: 60 MILLIGRAM, QD
     Route: 065
     Dates: start: 2022

REACTIONS (1)
  - Wrong dose [Unknown]

NARRATIVE: CASE EVENT DATE: 20240604
